FAERS Safety Report 10312290 (Version 2)
Quarter: 2014Q3

REPORT INFORMATION
  Report Type: Spontaneous
  Country: CA (occurrence: CA)
  Receive Date: 20140718
  Receipt Date: 20140718
  Transmission Date: 20150326
  Serious: Yes (Other)
  Sender: FDA-Public Use
  Company Number: CA-009507513-1310CAN006679

PATIENT
  Age: 38 Year
  Sex: Female
  Weight: 102.4 kg

DRUGS (4)
  1. NORTRIPTYLINE [Concomitant]
     Active Substance: NORTRIPTYLINE
     Dosage: 25 MG, HS
     Route: 065
  2. JANUMET [Suspect]
     Active Substance: METFORMIN HYDROCHLORIDE\SITAGLIPTIN PHOSPHATE
     Dosage: UNK
     Route: 048
  3. EFFEXOR XR [Concomitant]
     Active Substance: VENLAFAXINE HYDROCHLORIDE
     Dosage: 150 MG, QD
     Route: 065
  4. JANUMET [Suspect]
     Active Substance: METFORMIN HYDROCHLORIDE\SITAGLIPTIN PHOSPHATE
     Indication: TRISMUS
     Dosage: 1.0 DF, BID (STRENGTH: 50(+)1000 (UNITS UNSPECIFIED))
     Route: 048
     Dates: start: 20130123, end: 20130211

REACTIONS (3)
  - Swollen tongue [Unknown]
  - Trismus [Unknown]
  - Joint stiffness [Unknown]

NARRATIVE: CASE EVENT DATE: 20130211
